FAERS Safety Report 23945822 (Version 3)
Quarter: 2024Q3

REPORT INFORMATION
  Report Type: Spontaneous
  Country: US (occurrence: US)
  Receive Date: 20240606
  Receipt Date: 20240729
  Transmission Date: 20241016
  Serious: Yes (Hospitalization, Other)
  Sender: PFIZER
  Company Number: US-PFIZER INC-202400185567

PATIENT
  Age: 67 Year
  Sex: Female
  Weight: 61.6 kg

DRUGS (2)
  1. TRAZIMERA [Suspect]
     Active Substance: TRASTUZUMAB-QYYP
     Indication: Colorectal cancer metastatic
     Dosage: 524 MG ONE DOSE BY INFUSION
     Dates: start: 20240424, end: 20240424
  2. PERJETA [Suspect]
     Active Substance: PERTUZUMAB
     Indication: Colorectal cancer metastatic
     Dosage: 840 MG BY INFUSION
     Dates: start: 20240424, end: 20240424

REACTIONS (3)
  - Drug-induced liver injury [Recovering/Resolving]
  - Blood bilirubin increased [Recovering/Resolving]
  - Off label use [Unknown]

NARRATIVE: CASE EVENT DATE: 20240424
